FAERS Safety Report 25925927 (Version 3)
Quarter: 2025Q4

REPORT INFORMATION
  Report Type: Report from Study
  Country: EU (occurrence: EU)
  Receive Date: 20251015
  Receipt Date: 20251210
  Transmission Date: 20260117
  Serious: Yes (Other)
  Sender: MERZ
  Company Number: EU-ACORDA THERAPEUTICS IRELAND LIMITED-ACO_179149_2025

PATIENT

DRUGS (8)
  1. INBRIJA [Suspect]
     Active Substance: LEVODOPA
     Indication: Parkinson^s disease
     Dosage: 33 MILLIGRAM, 3 DOSIS A DAY MAXIMUM
     Dates: start: 202508
  2. INBRIJA [Suspect]
     Active Substance: LEVODOPA
     Dosage: 33 MILLIGRAM, 3 DOSIS A DAY MAXIMUM
     Dates: start: 202508
  3. XADAGO [Concomitant]
     Active Substance: SAFINAMIDE MESYLATE
     Indication: Product used for unknown indication
     Dosage: 0-0-1
     Route: 065
  4. XADAGO [Concomitant]
     Active Substance: SAFINAMIDE MESYLATE
     Dosage: UNK
  5. PRAMIPEXOLE [Concomitant]
     Active Substance: PRAMIPEXOLE
     Indication: Product used for unknown indication
     Dosage: 1-0-0
     Route: 065
  6. STALEVO [Concomitant]
     Active Substance: CARBIDOPA\ENTACAPONE\LEVODOPA
     Indication: Product used for unknown indication
     Dosage: 1-1-1-1-1 (THE LAST ONE AT NIGHT BECAUSE OTHERWISE IT CANNOT BE MOVED)
     Route: 065
  7. CARBIDOPA\LEVODOPA [Concomitant]
     Active Substance: CARBIDOPA\LEVODOPA
     Indication: Product used for unknown indication
     Dosage: RETARD, UNK, 1-1-1
     Route: 065
  8. LORAZEPAM [Concomitant]
     Active Substance: LORAZEPAM
     Indication: Anxiety
     Dosage: UNK
     Route: 065

REACTIONS (16)
  - Respiratory distress [Recovered/Resolved]
  - Abdominal discomfort [Unknown]
  - Panic reaction [Unknown]
  - Feeling abnormal [Unknown]
  - Suffocation feeling [Not Recovered/Not Resolved]
  - Dyspnoea [Not Recovered/Not Resolved]
  - Muscle spasms [Unknown]
  - Initial insomnia [Unknown]
  - Incorrect dose administered [Not Recovered/Not Resolved]
  - Therapeutic product effect variable [Not Recovered/Not Resolved]
  - Wrong technique in product usage process [Not Recovered/Not Resolved]
  - Device difficult to use [Unknown]
  - Product residue present [Recovered/Resolved]
  - Therapeutic product effect delayed [Unknown]
  - Inappropriate schedule of product administration [Unknown]
  - Product administration error [Unknown]

NARRATIVE: CASE EVENT DATE: 20250801
